FAERS Safety Report 5907394-6 (Version None)
Quarter: 2008Q3

REPORT INFORMATION
  Report Type: 
  Country: None (occurrence: None)
  Receive Date: 20080929
  Receipt Date: 20080915
  Transmission Date: 20090109
  Serious: Yes (Hospitalization)
  Sender: FDA-Public Use
  Company Number: 2008AL010522

PATIENT
  Age: 53 Year
  Sex: Female
  Weight: 83 kg

DRUGS (2)
  1. DICLOFENAC SODIUM EXTENDED-RELEASE TABLETS, 100 MG (PUREPAC) (DICLOFEN [Suspect]
     Indication: ARTHROPATHY
     Dosage: PO
     Route: 048
  2. DICLOFENAC SODIUM EXTENDED-RELEASE TABLETS, 100 MG (PUREPAC) (DICLOFEN [Suspect]
     Indication: MYALGIA
     Dosage: PO
     Route: 048

REACTIONS (4)
  - GLOMERULONEPHRITIS MINIMAL LESION [None]
  - NEPHROTIC SYNDROME [None]
  - RENAL FAILURE ACUTE [None]
  - RENAL TUBULAR NECROSIS [None]
